FAERS Safety Report 5404823-1 (Version None)
Quarter: 2007Q3

REPORT INFORMATION
  Report Type: 
  Country: None (occurrence: None)
  Receive Date: 20070803
  Receipt Date: 20070731
  Transmission Date: 20080115
  Serious: Yes (Life-Threatening, Hospitalization, Other)
  Sender: FDA-Public Use
  Company Number: PHBS2007SE11007

PATIENT
  Age: 9 Year
  Sex: Male

DRUGS (27)
  1. CYCLOSPORINE [Suspect]
     Indication: STEM CELL TRANSPLANT
     Route: 065
  2. SULFAMETHOXAZOLE W/TRIMETHOPRIM [Concomitant]
  3. ONDANSETRON [Concomitant]
  4. ALLOPURINOL [Concomitant]
  5. ACETAMINOPHEN [Concomitant]
  6. CODEINE SUL TAB [Concomitant]
  7. MESNA [Concomitant]
  8. ACYCLOVIR [Concomitant]
  9. FLUCONAZOLE [Concomitant]
  10. RANITIDINE [Concomitant]
  11. AMPICILLIN [Concomitant]
  12. GENTAMICIN [Concomitant]
  13. CEFTAZIDIME [Concomitant]
  14. VANCOMYCIN [Concomitant]
  15. LACTULOSE [Concomitant]
  16. TRIMEPRAZINE TAB [Concomitant]
  17. FUROSEMIDE INTENSOL [Concomitant]
  18. ZOPICLONE [Concomitant]
  19. MORPHINE [Concomitant]
  20. PREDNISOLONE [Concomitant]
  21. NIFEDIPINE [Concomitant]
  22. DEXCHLORPHENIRAMINE [Concomitant]
  23. MEROPENEM [Concomitant]
  24. CEFOTAXIME SODIUM [Concomitant]
  25. METHOTREXATE [Concomitant]
     Indication: STEM CELL TRANSPLANT
     Route: 065
  26. IRRADIATION [Concomitant]
     Indication: STEM CELL TRANSPLANT
  27. CYCLOPHOSPHAMIDE [Concomitant]
     Indication: STEM CELL TRANSPLANT

REACTIONS (25)
  - ACUTE GRAFT VERSUS HOST DISEASE IN SKIN [None]
  - BLOOD LACTATE DEHYDROGENASE INCREASED [None]
  - C-REACTIVE PROTEIN INCREASED [None]
  - DEHYDRATION [None]
  - DRUG LEVEL FLUCTUATING [None]
  - ENTEROCOCCAL SEPSIS [None]
  - HAEMODIALYSIS [None]
  - HAEMOLYSIS [None]
  - HAEMOLYTIC URAEMIC SYNDROME [None]
  - HYPERKALAEMIA [None]
  - HYPERNATRAEMIA [None]
  - HYPERTENSION [None]
  - HYPOTHERMIA [None]
  - OLIGURIA [None]
  - PLATELET COUNT DECREASED [None]
  - PLATELET COUNT INCREASED [None]
  - RASH MACULO-PAPULAR [None]
  - RASH PAPULAR [None]
  - RED BLOOD CELL SCHISTOCYTES PRESENT [None]
  - RENAL FAILURE [None]
  - SKIN EXFOLIATION [None]
  - TACHYCARDIA [None]
  - TOXIC EPIDERMAL NECROLYSIS [None]
  - TRACHEOSTOMY [None]
  - WHITE BLOOD CELL COUNT DECREASED [None]
